FAERS Safety Report 9137648 (Version 1)
Quarter: 2013Q1

REPORT INFORMATION
  Report Type: Spontaneous
  Country: US (occurrence: US)
  Receive Date: 20130304
  Receipt Date: 20130304
  Transmission Date: 20140127
  Serious: Yes (Other)
  Sender: FDA-Public Use
  Company Number: US-ELI_LILLY_AND_COMPANY-US201302007585

PATIENT
  Sex: Male

DRUGS (3)
  1. AXIRON [Suspect]
     Dosage: UNK UNK, BID
     Route: 061
     Dates: start: 2012
  2. ASPIRIN [Concomitant]
     Indication: HYPERTENSION
  3. PLAVIX [Concomitant]
     Indication: HYPERTENSION

REACTIONS (2)
  - Cerebrovascular accident [Recovered/Resolved]
  - Slow speech [Not Recovered/Not Resolved]
